FAERS Safety Report 4729698-5 (Version None)
Quarter: 2005Q3

REPORT INFORMATION
  Report Type: 
  Country: None (occurrence: None)
  Receive Date: 20050728
  Receipt Date: 20050715
  Transmission Date: 20060218
  Serious: Yes (Death, Other)
  Sender: FDA-Public Use
  Company Number: 2004106658

PATIENT
  Age: 51 Year
  Sex: Male

DRUGS (12)
  1. NEURONTIN [Suspect]
     Indication: NECK PAIN
     Dates: start: 20000101
  2. VISTARIL [Concomitant]
  3. XANAX [Concomitant]
  4. BUSPAR [Concomitant]
  5. RISPERDAL [Concomitant]
  6. CELEXA [Concomitant]
  7. PROZAC [Concomitant]
  8. ATIVAN [Concomitant]
  9. VALIUM [Concomitant]
  10. SEROQUEL [Concomitant]
  11. TRAZODONE [Concomitant]
  12. LEXAPRO [Concomitant]

REACTIONS (8)
  - AGORAPHOBIA [None]
  - ANXIETY [None]
  - COMPLETED SUICIDE [None]
  - DEPRESSION [None]
  - DRUG INEFFECTIVE [None]
  - GUN SHOT WOUND [None]
  - HEAD INJURY [None]
  - PANIC ATTACK [None]
